FAERS Safety Report 12852224 (Version 7)
Quarter: 2017Q2

REPORT INFORMATION
  Report Type: Report from Study
  Country: BE (occurrence: BE)
  Receive Date: 20161017
  Receipt Date: 20170508
  Transmission Date: 20170830
  Serious: Yes (Hospitalization)
  Sender: FDA-Public Use
  Company Number: BE-EISAI MEDICAL RESEARCH-EC-2016-021268

PATIENT
  Age: 58 Year
  Sex: Female
  Weight: 60 kg

DRUGS (8)
  1. VIMPAT [Concomitant]
     Active Substance: LACOSAMIDE
  2. KEPPRA [Concomitant]
     Active Substance: LEVETIRACETAM
  3. TEGRETOL [Concomitant]
     Active Substance: CARBAMAZEPINE
  4. DIPHANTOINE [Concomitant]
     Active Substance: PHENYTOIN
  5. LAMICTAL [Concomitant]
     Active Substance: LAMOTRIGINE
  6. FYCOMPA [Suspect]
     Active Substance: PERAMPANEL
     Route: 048
     Dates: start: 20160930, end: 20161109
  7. FYCOMPA [Suspect]
     Active Substance: PERAMPANEL
     Indication: EPILEPSY
     Route: 048
     Dates: start: 20160915, end: 20160929
  8. PANTOMED [Concomitant]
     Active Substance: DEXPANTHENOL

REACTIONS (5)
  - Volvulus [Recovered/Resolved]
  - Status epilepticus [Recovered/Resolved with Sequelae]
  - Deep vein thrombosis [Recovered/Resolved]
  - Pneumonia aspiration [Recovered/Resolved]
  - Bacteraemia [Recovered/Resolved]

NARRATIVE: CASE EVENT DATE: 20161010
